FAERS Safety Report 6214849-6 (Version None)
Quarter: 2009Q2

REPORT INFORMATION
  Report Type: 
  Country: None (occurrence: None)
  Receive Date: 20090604
  Receipt Date: 20090527
  Transmission Date: 20091009
  Serious: Yes (Hospitalization)
  Sender: FDA-Public Use
  Company Number: JP-ASTRAZENECA-2009SE02067

PATIENT
  Age: 71 Year
  Sex: Male

DRUGS (2)
  1. CASODEX [Suspect]
     Indication: PROSTATE CANCER
     Route: 048
  2. LEUPRORELIN ACETATE [Suspect]
     Indication: PROSTATE CANCER
     Dosage: DOSE UNKNOWN
     Route: 041

REACTIONS (1)
  - BREAST CANCER MALE [None]
